FAERS Safety Report 24125517 (Version 1)
Quarter: 2024Q3

REPORT INFORMATION
  Report Type: Report from Study
  Country: CN (occurrence: CN)
  Receive Date: 20240723
  Receipt Date: 20240723
  Transmission Date: 20241017
  Serious: Yes (Hospitalization, Other)
  Sender: ACCORD
  Company Number: CN-Accord-435852

PATIENT
  Age: 72 Year
  Sex: Male
  Weight: 47.0 kg

DRUGS (7)
  1. FLUOROURACIL [Suspect]
     Active Substance: FLUOROURACIL
     Indication: HER2 positive colorectal cancer
     Dosage: 400 MG/M2 IV BOLUS THEN 5-FLUOROURACIL 2400 MG/M2 (IV OVER 46-48 HOURS)
     Route: 042
     Dates: start: 20240115, end: 20240315
  2. OXALIPLATIN [Suspect]
     Active Substance: OXALIPLATIN
     Indication: HER2 positive colorectal cancer
     Dosage: EVERY 2 WEEKS ON DAYS 1, 15, AND 29 OF EACH 6-WEEK (42-DAY) CYCLE, INJECTION
     Route: 042
     Dates: start: 20240115, end: 20240315
  3. HERCEPTIN [Suspect]
     Active Substance: TRASTUZUMAB
     Indication: HER2 positive colorectal cancer
     Dosage: 8 MG/KG ON CYCLE 1 OF EVERY 3 WEEKS (Q3W) (SINGLE LOADING DOSE 8 MG/KG IV ON C1D1)
     Route: 042
     Dates: start: 20240115, end: 20240319
  4. LEUCOVORIN [Concomitant]
     Active Substance: LEUCOVORIN\LEUCOVORIN CALCIUM
     Indication: HER2 positive colorectal cancer
     Dosage: 400 MG/M2, EVERY 2 WEEKS ON DAYS 1, 15 AND 29 OF EACH 6-WEEK CYCLE
     Route: 042
     Dates: start: 20240115, end: 20240315
  5. TUCATINIB [Concomitant]
     Active Substance: TUCATINIB
     Indication: HER2 positive colorectal cancer
     Dosage: BID
     Route: 048
     Dates: start: 20240115, end: 20240326
  6. LOPERAMIDE [Concomitant]
     Active Substance: LOPERAMIDE
     Indication: Prophylaxis against diarrhoea
     Dosage: 4 MG, THREE TIMES DAILY (DAYS 1 TO 14) FOLLOWED BY 4 MG TWICE DAILY (DAY 15 THROUGH DAY 42)
     Route: 048
     Dates: start: 20240115, end: 20240226
  7. FLUOROURACIL [Suspect]
     Active Substance: FLUOROURACIL
     Indication: HER2 positive colorectal cancer
     Dosage: 2400 MG/M2 (OVER 46-48 HOURS) EVERY 2 WEEKS ON DAYS 1,15 AND 29 OF EACH 6-WEEK CYCLE, INJECTION
     Dates: start: 20240115, end: 20240315

REACTIONS (1)
  - Peripheral sensory neuropathy [Not Recovered/Not Resolved]

NARRATIVE: CASE EVENT DATE: 20240329
